FAERS Safety Report 7680389-0 (Version None)
Quarter: 2011Q3

REPORT INFORMATION
  Report Type: 
  Country: None (occurrence: None)
  Receive Date: 20110811
  Receipt Date: 20110811
  Transmission Date: 20111222
  Serious: Yes (Other)
  Sender: FDA-Public Use
  Company Number: None

PATIENT
  Age: 56 Year
  Sex: Female
  Weight: 80.81 kg

DRUGS (5)
  1. CISPLATIN [Suspect]
     Dosage: 80MG/M2
     Dates: start: 20110517
  2. ZOFRAN [Concomitant]
  3. PHENERGAN HCL [Concomitant]
  4. RAD001 (EVEROLIMUS) [Suspect]
     Indication: BREAST CANCER
     Dosage: 5MG 1 PO QD
     Route: 048
     Dates: start: 20110517, end: 20110816
  5. PACLITAXEL [Suspect]
     Dosage: 25MG/M2

REACTIONS (1)
  - NEUTROPENIA [None]
